FAERS Safety Report 6262015-0 (Version None)
Quarter: 2009Q3

REPORT INFORMATION
  Report Type: 
  Country: None (occurrence: None)
  Receive Date: 20090707
  Receipt Date: 20090707
  Transmission Date: 20100115
  Serious: Yes (Other)
  Sender: FDA-Public Use
  Company Number: None

PATIENT
  Age: 35 Year
  Sex: Female
  Weight: 61.2356 kg

DRUGS (1)
  1. CYMBALTA [Suspect]
     Indication: ANXIETY
     Dosage: 60 MG 1 / DAY PO
     Route: 048
     Dates: start: 20090406, end: 20090703

REACTIONS (11)
  - ANGER [None]
  - APATHY [None]
  - DEPRESSION [None]
  - FEAR [None]
  - FEELING OF DESPAIR [None]
  - IMPATIENCE [None]
  - IMPULSIVE BEHAVIOUR [None]
  - SCREAMING [None]
  - TEARFULNESS [None]
  - VIOLENCE-RELATED SYMPTOM [None]
  - WEIGHT INCREASED [None]
